FAERS Safety Report 12756152 (Version 2)
Quarter: 2016Q3

REPORT INFORMATION
  Report Type: Report from Study
  Country: TR (occurrence: TR)
  Receive Date: 20160916
  Receipt Date: 20160922
  Transmission Date: 20161109
  Serious: Yes (Disabling, Other)
  Sender: FDA-Public Use
  Company Number: TR-BRISTOL-MYERS SQUIBB COMPANY-BMS-2016-074262

PATIENT
  Age: 32 Year
  Sex: Female
  Weight: 49 kg

DRUGS (5)
  1. VALTREX [Concomitant]
     Active Substance: VALACYCLOVIR HYDROCHLORIDE
     Indication: HERPES ZOSTER
     Dosage: 2 TAB, QD
     Route: 065
     Dates: start: 20160209
  2. VALTREX [Concomitant]
     Active Substance: VALACYCLOVIR HYDROCHLORIDE
     Indication: PROPHYLAXIS
  3. BACTRIM [Concomitant]
     Active Substance: SULFAMETHOXAZOLE\TRIMETHOPRIM
     Indication: ANTIFUNGAL PROPHYLAXIS
     Dosage: 1 DF, BID, THREE TIMES A WEEK
     Route: 048
     Dates: start: 20150211
  4. ZOLAX                              /00595201/ [Concomitant]
     Indication: PROPHYLAXIS
     Dosage: 200 MG, QD
     Route: 065
     Dates: start: 20150211
  5. NIVOLUMAB [Suspect]
     Active Substance: NIVOLUMAB
     Indication: HODGKIN^S DISEASE
     Dosage: 3 MG/KG, Q2WK, TOTAL DOSE: 147 MG
     Route: 042
     Dates: start: 20160829, end: 20160905

REACTIONS (2)
  - Graft versus host disease [Unknown]
  - Rash [Not Recovered/Not Resolved]

NARRATIVE: CASE EVENT DATE: 20160905
